FAERS Safety Report 9911556 (Version 1)
Quarter: 2014Q1

REPORT INFORMATION
  Report Type: Spontaneous
  Country: MY (occurrence: MY)
  Receive Date: 20140219
  Receipt Date: 20140219
  Transmission Date: 20141002
  Serious: Yes (Other)
  Sender: FDA-Public Use
  Company Number: PHHY2014MY017560

PATIENT
  Age: 37 Year
  Sex: Female

DRUGS (8)
  1. TEGRETOL [Suspect]
     Indication: EPILEPSY
     Dosage: 200 MG, DAILY
     Route: 048
  2. TEGRETOL [Interacting]
     Dosage: 200 MG, QW2
     Route: 048
  3. TEGRETOL [Interacting]
     Dosage: 200 MG, BID
     Route: 048
  4. TEGRETOL [Interacting]
     Dosage: 100 MG, BID
     Route: 048
  5. CARBIMAZOLE [Interacting]
     Indication: HYPERTHYROIDISM
     Dosage: 15 MG, DAILY
  6. CARBIMAZOLE [Interacting]
     Dosage: 20 MG, DAILY
  7. PROPRANOLOL [Interacting]
     Indication: HYPERTHYROIDISM
     Dosage: 10 MG, TID
  8. PROPRANOLOL [Interacting]
     Dosage: 10 MG, BID

REACTIONS (7)
  - Convulsion [Unknown]
  - Dizziness [Unknown]
  - Somnolence [Unknown]
  - Clonic convulsion [Unknown]
  - Drug level increased [Unknown]
  - Drug clearance decreased [Unknown]
  - Drug interaction [Unknown]
